FAERS Safety Report 9760144 (Version 2)
Quarter: 2014Q1

REPORT INFORMATION
  Report Type: Spontaneous
  Country: US (occurrence: US)
  Receive Date: 20131216
  Receipt Date: 20140115
  Transmission Date: 20141002
  Serious: No
  Sender: FDA-Public Use
  Company Number: US-PFIZER INC-2013359649

PATIENT
  Age: 59 Year
  Sex: Female
  Weight: 77.1 kg

DRUGS (3)
  1. GABAPENTIN [Suspect]
     Indication: NEURALGIA
     Dosage: UNK
     Dates: start: 2013
  2. GABAPENTIN [Suspect]
     Dosage: 600 MG, 4X/DAY
     Dates: start: 2013, end: 201310
  3. HYZAAR [Concomitant]
     Indication: BLOOD PRESSURE ABNORMAL
     Dosage: 25 MG OF HYDROCHLOROTHIAZIDE/ 100 MG OF LOSARTAN POTASSIUM, 1X/DAY

REACTIONS (1)
  - Drug ineffective [Unknown]
